FAERS Safety Report 12136233 (Version 1)
Quarter: 2016Q1

REPORT INFORMATION
  Report Type: Spontaneous
  Country: US (occurrence: None)
  Receive Date: 20160301
  Receipt Date: 20160301
  Transmission Date: 20160526
  Serious: Yes (Other)
  Sender: FDA-Public Use
  Company Number: None

PATIENT
  Age: 69 Year
  Sex: Female
  Weight: 49.9 kg

DRUGS (6)
  1. CYMBALTA [Suspect]
     Active Substance: DULOXETINE HYDROCHLORIDE
     Indication: INFLAMMATION
     Route: 048
  2. VITAMIN D [Suspect]
     Active Substance: CHOLECALCIFEROL
  3. OIL [Suspect]
     Active Substance: MINERAL OIL
  4. VITAMIN E [Suspect]
     Active Substance: .ALPHA.-TOCOPHEROL
  5. VIT B [Suspect]
     Active Substance: VITAMIN B
  6. FOLIC ACID. [Suspect]
     Active Substance: FOLIC ACID

REACTIONS (10)
  - Pain [None]
  - Renal neoplasm [None]
  - Dizziness [None]
  - Burning sensation [None]
  - Contusion [None]
  - Arthralgia [None]
  - Insomnia [None]
  - Dyspnoea [None]
  - Abdominal pain [None]
  - Haematoma [None]

NARRATIVE: CASE EVENT DATE: 201503
